FAERS Safety Report 5455467-7 (Version None)
Quarter: 2007Q3

REPORT INFORMATION
  Report Type: 
  Country: None (occurrence: None)
  Receive Date: 20070914
  Receipt Date: 20070830
  Transmission Date: 20080115
  Serious: Yes (Other)
  Sender: FDA-Public Use
  Company Number: 2007RR-09744

PATIENT
  Age: 37 Year
  Sex: Female

DRUGS (3)
  1. ACETAMINOPHEN [Suspect]
     Dosage: 30 G;
  2. METHADONE HCL [Suspect]
     Dosage: 60 MG;
  3. CARBAMAZEPINE [Concomitant]

REACTIONS (6)
  - ACUTE HEPATIC FAILURE [None]
  - DRUG INEFFECTIVE [None]
  - LIVER TRANSPLANT [None]
  - OVERDOSE [None]
  - POOR VENOUS ACCESS [None]
  - PROTHROMBIN TIME PROLONGED [None]
